FAERS Safety Report 6480112-1 (Version None)
Quarter: 2009Q4

REPORT INFORMATION
  Report Type: 
  Country: None (occurrence: None)
  Receive Date: 20091119
  Receipt Date: 20090803
  Transmission Date: 20100525
  Serious: No
  Sender: FDA-Public Use
  Company Number: WAES 0906USA00131

PATIENT
  Age: 76 Year
  Sex: Female

DRUGS (4)
  1. JANUVIA [Suspect]
     Dates: end: 20080101
  2. JANUMET [Concomitant]
  3. VYTORIN [Concomitant]
  4. GLIPIZIDE [Concomitant]

REACTIONS (3)
  - ALOPECIA [None]
  - RASH ERYTHEMATOUS [None]
  - RASH PRURITIC [None]
